FAERS Safety Report 17710756 (Version 1)
Quarter: 2020Q2

REPORT INFORMATION
  Report Type: Spontaneous
  Country: US (occurrence: US)
  Receive Date: 20200427
  Receipt Date: 20200427
  Transmission Date: 20200714
  Serious: Yes (Hospitalization)
  Sender: FDA-Public Use
  Company Number: US-MYLANLABS-2020M1040786

PATIENT
  Age: 35 Year
  Sex: Male
  Weight: 62 kg

DRUGS (8)
  1. PROPOFOL. [Concomitant]
     Active Substance: PROPOFOL
     Indication: SEDATIVE THERAPY
     Route: 042
  2. PANTOPRAZOLE [Suspect]
     Active Substance: PANTOPRAZOLE
     Indication: GASTROOESOPHAGEAL REFLUX DISEASE
     Dosage: 40 MILLIGRAM, QD
     Route: 065
  3. OXYCODONE [Suspect]
     Active Substance: OXYCODONE
     Indication: ABDOMINAL PAIN
     Dosage: 5 MILLIGRAM, Q6H AS NEEDED
     Route: 065
  4. SUMATRIPTAN. [Suspect]
     Active Substance: SUMATRIPTAN
     Indication: MIGRAINE
     Dosage: 100 MILLIGRAM INTERVAL: AS NEEDED
     Route: 065
  5. FENTANYL. [Suspect]
     Active Substance: FENTANYL
     Indication: SEDATIVE THERAPY
     Dosage: 100 MICROGRAM
     Route: 042
  6. NIGELLA SATIVA SEED OIL [Suspect]
     Active Substance: DIETARY SUPPLEMENT\HERBALS
     Indication: MIGRAINE
     Dosage: UNK
     Route: 048
  7. NIGELLA SATIVA SEED OIL [Suspect]
     Active Substance: DIETARY SUPPLEMENT\HERBALS
     Indication: PROPHYLAXIS
  8. GABAPENTIN. [Concomitant]
     Active Substance: GABAPENTIN
     Dosage: 900 MILLIGRAM, QD
     Route: 065

REACTIONS (1)
  - Serotonin syndrome [Recovered/Resolved]
